FAERS Safety Report 7007328-X (Version None)
Quarter: 2010Q3

REPORT INFORMATION
  Report Type: 
  Country: None (occurrence: None)
  Receive Date: 20100920
  Receipt Date: 20100908
  Transmission Date: 20110219
  Serious: Yes (Hospitalization, Disabling)
  Sender: FDA-Public Use
  Company Number: 018365

PATIENT
  Sex: Female
  Weight: 65.8 kg

DRUGS (12)
  1. CIMZIA [Suspect]
     Indication: CROHN'S DISEASE
     Dosage: (400 MG 1X/MONTH SUBCUTANEOUS)
     Route: 058
     Dates: start: 20090801
  2. PREDNISONE [Concomitant]
  3. FENTANYL [Concomitant]
  4. PROTONIX [Concomitant]
  5. KLONOPIN [Concomitant]
  6. CELEXA [Concomitant]
  7. ZOFRAN [Concomitant]
  8. VITAMIN B-12 [Concomitant]
  9. PHENERGAN [Concomitant]
  10. DARVOCET-N 100 [Concomitant]
  11. ATIVAN [Concomitant]
  12. IMURAN [Concomitant]

REACTIONS (7)
  - ANXIETY [None]
  - ASTHENIA [None]
  - CONDITION AGGRAVATED [None]
  - CROHN'S DISEASE [None]
  - DEPRESSION [None]
  - HERPES ZOSTER [None]
  - POST HERPETIC NEURALGIA [None]
